FAERS Safety Report 18523354 (Version 3)
Quarter: 2020Q4

REPORT INFORMATION
  Report Type: Report from Study
  Country: HU (occurrence: HU)
  Receive Date: 20201119
  Receipt Date: 20201218
  Transmission Date: 20210114
  Serious: Yes (Death, Hospitalization, Other)
  Sender: FDA-Public Use
  Company Number: NVSC2020HU307276

PATIENT
  Age: 68 Year
  Sex: Female
  Weight: 58 kg

DRUGS (4)
  1. AZI SANDOZ [Suspect]
     Active Substance: AZITHROMYCIN MONOHYDRATE
     Indication: COVID-19
     Dosage: 500 MG, QD
     Route: 065
     Dates: start: 20201106
  2. ULTIBRO BREEZHALER [Suspect]
     Active Substance: GLYCOPYRRONIUM\INDACATEROL
     Indication: CHRONIC OBSTRUCTIVE PULMONARY DISEASE
     Dosage: UNK
     Route: 065
  3. COVERCARD [Concomitant]
     Active Substance: AMLODIPINE BESYLATE\PERINDOPRIL ARGININE
     Indication: PRODUCT USED FOR UNKNOWN INDICATION
     Dosage: 1 DF, QD
     Route: 065
  4. THEOSPIREX [Concomitant]
     Active Substance: THEOPHYLLINE ANHYDROUS
     Indication: CHRONIC OBSTRUCTIVE PULMONARY DISEASE
     Dosage: 2 DF
     Route: 048
     Dates: start: 20201106

REACTIONS (10)
  - Respiratory failure [Fatal]
  - Bladder cancer [Unknown]
  - Cardiovascular disorder [Unknown]
  - Chronic obstructive pulmonary disease [Fatal]
  - Disease progression [Unknown]
  - Hypertension [Unknown]
  - COVID-19 [Fatal]
  - Pneumonia viral [Fatal]
  - Circulatory collapse [Fatal]
  - Acute respiratory distress syndrome [Unknown]

NARRATIVE: CASE EVENT DATE: 202011
